FAERS Safety Report 23617916 (Version 1)
Quarter: 2024Q1

REPORT INFORMATION
  Report Type: Spontaneous
  Country: JP (occurrence: JP)
  Receive Date: 20240311
  Receipt Date: 20240311
  Transmission Date: 20240410
  Serious: Yes (Other)
  Sender: FDA-Public Use
  Company Number: JP-Ascend Therapeutics US, LLC-2154252

PATIENT
  Age: 54 Year
  Sex: Female

DRUGS (4)
  1. ESTROGEL [Suspect]
     Active Substance: ESTRADIOL
     Route: 062
     Dates: start: 20211012
  2. PROGESTERONE [Suspect]
     Active Substance: PROGESTERONE
     Route: 048
     Dates: start: 20211012
  3. ESTROGEL [Suspect]
     Active Substance: ESTRADIOL
     Route: 062
     Dates: start: 20211012
  4. PROGESTERONE [Suspect]
     Active Substance: PROGESTERONE
     Route: 048
     Dates: start: 20221203

REACTIONS (2)
  - Upper limb fracture [Recovering/Resolving]
  - Fall [Unknown]

NARRATIVE: CASE EVENT DATE: 20230919
